FAERS Safety Report 5813472-2 (Version None)
Quarter: 2008Q3

REPORT INFORMATION
  Report Type: 
  Country: None (occurrence: None)
  Receive Date: 20080716
  Receipt Date: 20080716
  Transmission Date: 20090109
  Serious: No
  Sender: FDA-Public Use
  Company Number: None

PATIENT
  Age: 71 Year
  Sex: Male

DRUGS (1)
  1. GLIPIZIDE [Suspect]
     Indication: HEPATITIS C
     Dosage: 20 MG BID PO
     Route: 048
     Dates: start: 20030116, end: 20080219

REACTIONS (8)
  - BLOOD PRESSURE SYSTOLIC INCREASED [None]
  - CONFUSIONAL STATE [None]
  - DRUG ADMINISTRATION ERROR [None]
  - HYPOGLYCAEMIA [None]
  - RHONCHI [None]
  - UNRESPONSIVE TO STIMULI [None]
  - VASCULAR ACCESS COMPLICATION [None]
  - WHEEZING [None]
